FAERS Safety Report 7032234-4 (Version None)
Quarter: 2010Q4

REPORT INFORMATION
  Report Type: 
  Country: None (occurrence: None)
  Receive Date: 20101007
  Receipt Date: 20101005
  Transmission Date: 20110411
  Serious: Yes (Other)
  Sender: FDA-Public Use
  Company Number: DE-BRISTOL-MYERS SQUIBB COMPANY-15186612

PATIENT
  Age: 15 Year
  Sex: Female

DRUGS (3)
  1. ABILIFY [Suspect]
     Indication: TOURETTE'S DISORDER
     Route: 048
     Dates: start: 20090101
  2. RISPERIDONE [Suspect]
     Indication: TOURETTE'S DISORDER
     Route: 048
     Dates: start: 20050101, end: 20090101
  3. TIAPRIDE [Suspect]
     Indication: TOURETTE'S DISORDER
     Route: 048
     Dates: start: 20050101, end: 20090101

REACTIONS (1)
  - CATARACT [None]
